FAERS Safety Report 7441691-0 (Version None)
Quarter: 2011Q2

REPORT INFORMATION
  Report Type: 
  Country: None (occurrence: None)
  Receive Date: 20110428
  Receipt Date: 20100308
  Transmission Date: 20111010
  Serious: No
  Sender: FDA-Public Use
  Company Number: A0847058A

PATIENT
  Age: 53 Year
  Sex: Female

DRUGS (4)
  1. LIPITOR [Concomitant]
  2. SEREVENT [Suspect]
     Indication: ASTHMA
     Dosage: 1PUFF TWICE PER DAY
     Route: 055
     Dates: start: 19830401, end: 20030401
  3. ALBUTEROL [Concomitant]
  4. METFORMIN [Concomitant]

REACTIONS (1)
  - FUNGAL INFECTION [None]
